FAERS Safety Report 10280143 (Version 2)
Quarter: 2014Q3

REPORT INFORMATION
  Report Type: Spontaneous
  Country: US (occurrence: US)
  Receive Date: 20140707
  Receipt Date: 20140818
  Transmission Date: 20150326
  Serious: No
  Sender: FDA-Public Use
  Company Number: US-ASTRAZENECA-2014SE46669

PATIENT
  Age: 26619 Day
  Sex: Female
  Weight: 64.4 kg

DRUGS (16)
  1. TOPROL XL [Suspect]
     Active Substance: METOPROLOL SUCCINATE
     Indication: BLOOD PRESSURE ABNORMAL
     Route: 048
     Dates: end: 20140507
  2. LEVOTHYROXIN [Concomitant]
     Active Substance: LEVOTHYROXINE
     Route: 048
  3. SIMVASTATIN. [Concomitant]
     Active Substance: SIMVASTATIN
     Route: 048
  4. CRANBERRY EXTRACT [Concomitant]
  5. TOPROL XL [Suspect]
     Active Substance: METOPROLOL SUCCINATE
     Indication: BLOOD PRESSURE ABNORMAL
     Dosage: 1 AND HALF 25MG TAB HS
     Route: 048
     Dates: start: 201406
  6. LOSARTAN [Concomitant]
     Active Substance: LOSARTAN
     Indication: BLOOD PRESSURE ABNORMAL
     Route: 048
     Dates: start: 2007
  7. ELIQUIS [Concomitant]
     Active Substance: APIXABAN
     Route: 048
  8. FISH OIL [Concomitant]
     Active Substance: FISH OIL
     Route: 048
  9. CENTRUM SILVER [Concomitant]
     Active Substance: VITAMINS
     Route: 048
  10. AMLODIPINE BESYLATE. [Concomitant]
     Active Substance: AMLODIPINE BESYLATE
     Indication: BLOOD PRESSURE ABNORMAL
     Route: 048
     Dates: start: 2007
  11. AMLODIPINE [Concomitant]
     Active Substance: AMLODIPINE BESYLATE
     Route: 048
  12. VAGIFEM [Concomitant]
     Active Substance: ESTRADIOL
     Route: 048
  13. TOPROL XL [Suspect]
     Active Substance: METOPROLOL SUCCINATE
     Indication: BLOOD PRESSURE ABNORMAL
     Dosage: 1 AND HALF 25MG TAB HS
     Route: 048
     Dates: start: 20140507, end: 201405
  14. TOPROL XL [Suspect]
     Active Substance: METOPROLOL SUCCINATE
     Indication: BLOOD PRESSURE ABNORMAL
     Route: 048
  15. TOPROL XL [Suspect]
     Active Substance: METOPROLOL SUCCINATE
     Indication: BLOOD PRESSURE ABNORMAL
     Dosage: 2 25MG TABS HS
     Route: 048
     Dates: start: 201405, end: 201406
  16. TOPROL XL [Suspect]
     Active Substance: METOPROLOL SUCCINATE
     Indication: BLOOD PRESSURE ABNORMAL
     Dosage: 1 1/2 DAILY
     Route: 048
     Dates: start: 20140731

REACTIONS (16)
  - Renal disorder [Unknown]
  - Mitral valve disease [Unknown]
  - Dizziness [Unknown]
  - Arrhythmia [Unknown]
  - Body height decreased [Unknown]
  - Anaemia [Unknown]
  - Atrial fibrillation [Unknown]
  - Thyroid disorder [Unknown]
  - Osteoporosis [Unknown]
  - Aortic valve disease [Unknown]
  - Syncope [Unknown]
  - Decreased activity [Unknown]
  - Malaise [Unknown]
  - Urinary tract infection [Unknown]
  - Chest pain [Unknown]
  - Essential hypertension [Unknown]

NARRATIVE: CASE EVENT DATE: 20081201
